FAERS Safety Report 10449703 (Version 2)
Quarter: 2015Q3

REPORT INFORMATION
  Report Type: Spontaneous
  Country: US (occurrence: US)
  Receive Date: 20140912
  Receipt Date: 20150924
  Transmission Date: 20151125
  Serious: No
  Sender: FDA-Public Use
  Company Number: US-INCYTE CORPORATION-2014IN001812

PATIENT
  Sex: Male
  Weight: 68.93 kg

DRUGS (3)
  1. JAKAFI [Suspect]
     Active Substance: RUXOLITINIB
     Dosage: 5 MG, BID
     Route: 048
     Dates: start: 20140219, end: 20150327
  2. THALOMID [Concomitant]
     Active Substance: THALIDOMIDE
  3. JAKAFI [Suspect]
     Active Substance: RUXOLITINIB
     Dosage: 10 MG BID (5 MG, 2 TABLETS IN THE AM, 2 TABLETS IN THE PM)
     Route: 048
     Dates: start: 201311

REACTIONS (2)
  - Laboratory test abnormal [Unknown]
  - Splenomegaly [Unknown]
